FAERS Safety Report 24360051 (Version 1)
Quarter: 2024Q3

REPORT INFORMATION
  Report Type: Spontaneous
  Country: US (occurrence: US)
  Receive Date: 20240925
  Receipt Date: 20240925
  Transmission Date: 20241017
  Serious: No
  Sender: ABBVIE
  Company Number: US-ABBVIE-5931811

PATIENT
  Sex: Female
  Weight: 104.32 kg

DRUGS (8)
  1. ELAGOLIX [Suspect]
     Active Substance: ELAGOLIX
     Indication: Endometriosis
     Dosage: FORM STRENGTH:200 MILLIGRAM
     Route: 048
     Dates: start: 201903
  2. LIVALO [Concomitant]
     Active Substance: PITAVASTATIN CALCIUM
     Indication: Blood cholesterol increased
  3. NEXIUM [Concomitant]
     Active Substance: ESOMEPRAZOLE MAGNESIUM
     Indication: Gastrooesophageal reflux disease
  4. FAMOTIDINE [Concomitant]
     Active Substance: FAMOTIDINE
     Indication: Gastrooesophageal reflux disease
  5. SIMPONI [Concomitant]
     Active Substance: GOLIMUMAB
     Indication: Ankylosing spondylitis
  6. CRESTOR [Suspect]
     Active Substance: ROSUVASTATIN CALCIUM
     Indication: Blood cholesterol increased
     Route: 065
  7. TYLENOL [Concomitant]
     Active Substance: ACETAMINOPHEN
     Indication: Headache
  8. Fanotidine [Concomitant]
     Indication: Gastrooesophageal reflux disease

REACTIONS (15)
  - Hot flush [Not Recovered/Not Resolved]
  - Off label use [Unknown]
  - Night sweats [Not Recovered/Not Resolved]
  - Blood triglycerides increased [Recovering/Resolving]
  - Pain [Recovered/Resolved]
  - Headache [Not Recovered/Not Resolved]
  - Blood cholesterol decreased [Recovering/Resolving]
  - Inflammatory marker increased [Not Recovered/Not Resolved]
  - Arthralgia [Not Recovered/Not Resolved]
  - Low density lipoprotein increased [Recovering/Resolving]
  - Blood follicle stimulating hormone decreased [Unknown]
  - Atrophic vulvovaginitis [Unknown]
  - Blood triglycerides increased [Recovering/Resolving]
  - Vulvovaginal dryness [Unknown]
  - High density lipoprotein decreased [Recovering/Resolving]

NARRATIVE: CASE EVENT DATE: 20200101
